FAERS Safety Report 5639244-X (Version None)
Quarter: 2008Q1

REPORT INFORMATION
  Report Type: 
  Country: None (occurrence: None)
  Receive Date: 20080226
  Receipt Date: 20080218
  Transmission Date: 20080703
  Serious: Yes (Hospitalization)
  Sender: FDA-Public Use
  Company Number: US-ELI_LILLY_AND_COMPANY-US200802004007

PATIENT
  Sex: Female

DRUGS (3)
  1. HUMULIN R [Suspect]
     Dates: start: 19820101
  2. IMURAN [Concomitant]
  3. CYCLOSPORINE [Concomitant]

REACTIONS (2)
  - NEPHROPATHY TOXIC [None]
  - RENAL TRANSPLANT [None]
